FAERS Safety Report 16688206 (Version 1)
Quarter: 2019Q3

REPORT INFORMATION
  Report Type: Spontaneous
  Country: DE (occurrence: DE)
  Receive Date: 20190809
  Receipt Date: 20190809
  Transmission Date: 20191004
  Serious: Yes (Death, Life-Threatening)
  Sender: FDA-Public Use
  Company Number: DE-009507513-1908DEU002814

PATIENT
  Age: 56 Year
  Sex: Male
  Weight: 64 kg

DRUGS (2)
  1. KEYTRUDA [Suspect]
     Active Substance: PEMBROLIZUMAB
     Indication: NON-SMALL CELL LUNG CANCER STAGE IV
     Dosage: 2 MG/KG, UNK
     Route: 042
     Dates: start: 20190604, end: 20190604
  2. ISCADOR [Concomitant]
     Active Substance: VISCUM ALBUM FRUITING TOP
     Indication: NON-SMALL CELL LUNG CANCER STAGE IV
     Dosage: 1 (UNIT NOT PROVIDED), QOW
     Route: 058

REACTIONS (1)
  - Myocarditis [Fatal]

NARRATIVE: CASE EVENT DATE: 20190606
